FAERS Safety Report 19995592 (Version 1)
Quarter: 2021Q4

REPORT INFORMATION
  Report Type: Spontaneous
  Country: US (occurrence: US)
  Receive Date: 20211025
  Receipt Date: 20211025
  Transmission Date: 20220303
  Serious: No
  Sender: FDA-Public Use
  Company Number: None

PATIENT
  Age: 64 Year
  Sex: Female
  Weight: 55.34 kg

DRUGS (1)
  1. COSENTYX [Suspect]
     Active Substance: SECUKINUMAB
     Indication: Psoriasis
     Dosage: ?          OTHER FREQUENCY:WEEKS 1.2 AND 3;
     Route: 058
     Dates: start: 202004

REACTIONS (2)
  - Nasopharyngitis [None]
  - Pain [None]
